FAERS Safety Report 7972713-6 (Version None)
Quarter: 2011Q4

REPORT INFORMATION
  Report Type: 
  Country: None (occurrence: None)
  Receive Date: 20111209
  Receipt Date: 20111128
  Transmission Date: 20120403
  Serious: Yes (Other)
  Sender: FDA-Public Use
  Company Number: 2011P1013410

PATIENT
  Sex: Male

DRUGS (1)
  1. DONEPEZIL HCL [Suspect]
     Indication: COGNITIVE DISORDER
     Dosage: 5 MG;QD;  15 MG;QD;

REACTIONS (11)
  - SKIN ULCER [None]
  - PRURITUS [None]
  - CEREBROVASCULAR DISORDER [None]
  - RASH PAPULAR [None]
  - VISUAL ACUITY REDUCED [None]
  - PAIN [None]
  - SENSORY DISTURBANCE [None]
  - NEURODERMATITIS [None]
  - SOMATIC DELUSION [None]
  - SCRATCH [None]
  - NEURALGIA [None]
